FAERS Safety Report 8486943-0 (Version None)
Quarter: 2012Q3

REPORT INFORMATION
  Report Type: 
  Country: None (occurrence: None)
  Receive Date: 20120704
  Receipt Date: 20120625
  Transmission Date: 20120928
  Serious: Yes (Other)
  Sender: FDA-Public Use
  Company Number: US-BAYER-2012-063983

PATIENT
  Age: 45 Year
  Sex: Male
  Weight: 91 kg

DRUGS (1)
  1. PHENYLEPHRINE HCL [Suspect]
     Indication: ABDOMINAL PAIN UPPER
     Dosage: 2 DF, ONCE
     Route: 048
     Dates: start: 20120624, end: 20120624

REACTIONS (6)
  - DRY MOUTH [None]
  - URTICARIA [None]
  - SWELLING FACE [None]
  - DIZZINESS [None]
  - THERAPEUTIC RESPONSE UNEXPECTED [None]
  - DYSPNOEA [None]
